FAERS Safety Report 7937928-1 (Version None)
Quarter: 2011Q4

REPORT INFORMATION
  Report Type: 
  Country: None (occurrence: None)
  Receive Date: 20111123
  Receipt Date: 20111114
  Transmission Date: 20120403
  Serious: Yes (Hospitalization)
  Sender: FDA-Public Use
  Company Number: US-BAYER-US-2006-021474

PATIENT
  Age: 38 Year
  Sex: Female
  Weight: 90 kg

DRUGS (16)
  1. HERBALIFE PRODUCTS [Concomitant]
  2. SKELAXIN [Concomitant]
  3. MORPHINE [Concomitant]
     Dosage: UNK
  4. YASMIN [Suspect]
     Indication: CONTRACEPTION
     Route: 048
     Dates: start: 20030501, end: 20060601
  5. ZOFRAN [Concomitant]
     Dosage: UNK
     Dates: start: 20060709
  6. TORADOL [Concomitant]
     Dosage: UNK
     Dates: start: 20060709
  7. TRAMADOL HCL [Concomitant]
     Dosage: UNK
     Dates: start: 20060709
  8. ALEVE COLD AND SINUS [Concomitant]
     Indication: NASOPHARYNGITIS
     Dosage: UNK UNK, PRN
     Dates: start: 20060705
  9. MOTRIN [Concomitant]
  10. ALEVE COLD AND SINUS [Concomitant]
     Indication: NASAL CONGESTION
  11. ZITHROMAX [Concomitant]
     Dosage: UNK
     Dates: start: 20060705
  12. ADVIL COLD AND SINUS [Concomitant]
  13. NASONEX [Concomitant]
  14. YAZ [Suspect]
     Indication: ORAL CONTRACEPTION
     Dosage: 1 TAB(S), 1X/DAY [DAILY DOSE: 1 TAB(S)] [TOTAL DOSE: 13 TAB(S)]
     Route: 048
     Dates: start: 20030101, end: 20060601
  15. YAZ [Suspect]
     Indication: MENSTRUAL CYCLE MANAGEMENT
  16. ZITHROMAX [Concomitant]
     Indication: SINUSITIS
     Dosage: UNK
     Dates: start: 20060421

REACTIONS (5)
  - PULMONARY INFARCTION [None]
  - PULMONARY EMBOLISM [None]
  - DYSPNOEA [None]
  - CHEST PAIN [None]
  - DEEP VEIN THROMBOSIS [None]
